FAERS Safety Report 4711220-0 (Version None)
Quarter: 2005Q3

REPORT INFORMATION
  Report Type: 
  Country: None (occurrence: None)
  Receive Date: 20050708
  Receipt Date: 20050627
  Transmission Date: 20060218
  Serious: Yes (Death, Other)
  Sender: FDA-Public Use
  Company Number: 2005FR-00062

PATIENT
  Age: 31 Year
  Sex: Female
  Weight: 58 kg

DRUGS (4)
  1. ASPIRIN [Suspect]
  2. DIPYRIDAMOLE [Concomitant]
  3. PRAVASTATIN [Concomitant]
  4. UNSPECIFIED ACE INHIBITOR AND THIAZIDE [Concomitant]

REACTIONS (2)
  - DRUG INTOLERANCE [None]
  - TRANSIENT ISCHAEMIC ATTACK [None]
